FAERS Safety Report 7064992-7 (Version None)
Quarter: 2010Q4

REPORT INFORMATION
  Report Type: 
  Country: None (occurrence: None)
  Receive Date: 20101027
  Receipt Date: 19930901
  Transmission Date: 20110411
  Serious: Yes (Death, Hospitalization)
  Sender: FDA-Public Use
  Company Number: DE-ROCHE-930319692001

PATIENT
  Age: 31 Year
  Sex: Female
  Weight: 53 kg

DRUGS (7)
  1. CEFTRIAXONE SODIUM [Suspect]
     Route: 042
     Dates: start: 19930624, end: 19930704
  2. ZINACEF [Concomitant]
     Route: 042
     Dates: start: 19930429, end: 19930502
  3. ZIENAM [Concomitant]
     Route: 042
     Dates: start: 19930503, end: 19930514
  4. BAYPEN [Concomitant]
     Route: 042
     Dates: start: 19930616, end: 19930624
  5. ANTIPYRETIC [Concomitant]
     Route: 065
     Dates: start: 19930429, end: 19930730
  6. WHOLE BLOOD [Concomitant]
     Route: 042
     Dates: start: 19930429, end: 19930730
  7. IMMU-G [Concomitant]
     Route: 042
     Dates: start: 19930429, end: 19930730

REACTIONS (2)
  - DEATH [None]
  - PSEUDOMEMBRANOUS COLITIS [None]
